FAERS Safety Report 10166035 (Version 1)
Quarter: 2014Q2

REPORT INFORMATION
  Report Type: Spontaneous
  Country: GB (occurrence: GB)
  Receive Date: 20140511
  Receipt Date: 20140511
  Transmission Date: 20141212
  Serious: Yes (Other)
  Sender: FDA-Public Use
  Company Number: GB-BRISTOL-MYERS SQUIBB COMPANY-20714937

PATIENT
  Age: 70 Year
  Sex: Male
  Weight: 83 kg

DRUGS (1)
  1. METFORMIN HCL [Suspect]
     Dates: start: 20140210, end: 20140310

REACTIONS (4)
  - Disturbance in attention [Recovered/Resolved]
  - Cognitive disorder [Recovered/Resolved]
  - Feeling abnormal [Recovered/Resolved]
  - Social avoidant behaviour [Recovered/Resolved]
